FAERS Safety Report 20530895 (Version 1)
Quarter: 2022Q1

REPORT INFORMATION
  Report Type: Spontaneous
  Country: US (occurrence: US)
  Receive Date: 20220301
  Receipt Date: 20220301
  Transmission Date: 20220423
  Serious: No
  Sender: FDA-Public Use
  Company Number: US-IGSA-BIG0013419

PATIENT
  Age: 54 Year
  Sex: Female
  Weight: 71 kg

DRUGS (19)
  1. PROLASTIN-C LIQUID [Suspect]
     Active Substance: .ALPHA.1-PROTEINASE INHIBITOR HUMAN
     Indication: Alpha-1 antitrypsin deficiency
     Dosage: 4260 MILLIGRAM, Q.WK.
     Route: 042
     Dates: start: 20190516
  2. FENOFIBRATE [Concomitant]
     Active Substance: FENOFIBRATE
  3. LORATADINE [Concomitant]
     Active Substance: LORATADINE
  4. PAXIL [Concomitant]
     Active Substance: PAROXETINE HYDROCHLORIDE
  5. SYNTHROID [Concomitant]
     Active Substance: LEVOTHYROXINE SODIUM
  6. LACTULOSE [Concomitant]
     Active Substance: LACTULOSE
  7. TRILEPTAL [Concomitant]
     Active Substance: OXCARBAZEPINE
  8. SYMBICORT [Concomitant]
     Active Substance: BUDESONIDE\FORMOTEROL FUMARATE DIHYDRATE
  9. MAXALT [Concomitant]
     Active Substance: RIZATRIPTAN BENZOATE
  10. PHENTERMINE [Concomitant]
     Active Substance: PHENTERMINE
  11. SOMA [Concomitant]
     Active Substance: CARISOPRODOL
  12. MIRTAZAPINE [Concomitant]
     Active Substance: MIRTAZAPINE
  13. RISPERDAL [Concomitant]
     Active Substance: RISPERIDONE
  14. VIVACTIL [Concomitant]
     Active Substance: PROTRIPTYLINE HYDROCHLORIDE
  15. CLONAZEPAM [Concomitant]
     Active Substance: CLONAZEPAM
  16. HALCION [Concomitant]
     Active Substance: TRIAZOLAM
  17. WELLBUTRIN [Concomitant]
     Active Substance: BUPROPION HYDROCHLORIDE
  18. NUCYNTA ER [Concomitant]
     Active Substance: TAPENTADOL HYDROCHLORIDE
  19. VALIUM [Concomitant]
     Active Substance: DIAZEPAM

REACTIONS (1)
  - Fatigue [Not Recovered/Not Resolved]

NARRATIVE: CASE EVENT DATE: 20190517
